FAERS Safety Report 8020943-X (Version None)
Quarter: 2011Q4

REPORT INFORMATION
  Report Type: 
  Country: None (occurrence: None)
  Receive Date: 20111229
  Receipt Date: 20111229
  Transmission Date: 20120403
  Serious: Yes (Hospitalization)
  Sender: FDA-Public Use
  Company Number: None

PATIENT
  Sex: Male
  Weight: 74.8435 kg

DRUGS (2)
  1. ASPIRIN [Suspect]
     Indication: STENT PLACEMENT
     Dosage: 325 MG DAILY ORAL
     Route: 048
     Dates: start: 20111209
  2. EFFIENT [Suspect]
     Indication: STENT PLACEMENT
     Dosage: 10MG DAILY ORAL
     Route: 048
     Dates: start: 20111209

REACTIONS (4)
  - BLADDER DISORDER [None]
  - BLOOD URINE PRESENT [None]
  - HAEMORRHAGE [None]
  - DYSTONIA [None]
